FAERS Safety Report 9598711 (Version 1)
Quarter: 2013Q4

REPORT INFORMATION
  Report Type: Spontaneous
  Country: US (occurrence: US)
  Receive Date: 20131004
  Receipt Date: 20131004
  Transmission Date: 20140711
  Serious: No
  Sender: FDA-Public Use
  Company Number: US-AMGEN-USASP2013025155

PATIENT
  Age: 59 Year
  Sex: Female

DRUGS (24)
  1. ENBREL [Suspect]
     Indication: PRODUCT USED FOR UNKNOWN INDICATION
     Dosage: 50 MG, QWK
     Route: 058
  2. SYNTHROID [Concomitant]
     Dosage: 75 MUG, UNK
  3. VASOTEC                            /00574902/ [Concomitant]
     Dosage: 20 MG, UNK
  4. CARDIZEM LA [Concomitant]
     Dosage: 120 MG, UNK
  5. ZETIA [Concomitant]
     Dosage: 10 MG, UNK
  6. LIPITOR [Concomitant]
     Dosage: 20 MG, UNK
  7. PLAQUENIL                          /00072602/ [Concomitant]
     Dosage: 200 MG, UNK
  8. SINGULAIR [Concomitant]
     Dosage: 10 MG, UNK
  9. PRILOSEC                           /00661201/ [Concomitant]
     Dosage: 10 MG, UNK
  10. ZOLOFT P [Concomitant]
     Dosage: 50 MG, UNK
  11. SPIRIVA [Concomitant]
     Dosage: UNK
  12. BUDESONIDE [Concomitant]
     Dosage: 0.5 MG/2
  13. BROVANA [Concomitant]
     Dosage: 15 MUG, UNK
  14. ALBUTEROL                          /00139501/ [Concomitant]
     Dosage: UNK
  15. FISH OIL CONCENTRATE [Concomitant]
     Dosage: UNK
  16. MULTIVITAMIN                       /00097801/ [Concomitant]
     Dosage: UNK
  17. VITAMIN B12                        /00056201/ [Concomitant]
     Dosage: 1000 UNK, UNK, CR
  18. VITAMIN B6 [Concomitant]
     Dosage: 250 MG, UNK
  19. VITAMIN C                          /00008001/ [Concomitant]
     Dosage: 500 MG, UNK
  20. NIACIN [Concomitant]
     Dosage: 250 MG, UNK
  21. CALCIUM + MAGNESIUM + ZINK [Concomitant]
     Dosage: UNK
  22. VITAMIN E                          /00110501/ [Concomitant]
     Dosage: 1000 UNIT, UNK
  23. VITAMIN D                          /00107901/ [Concomitant]
     Dosage: 1000 UNIT, UNK
  24. EXCEDRIN                           /00110301/ [Concomitant]
     Dosage: UNK

REACTIONS (2)
  - Oedema peripheral [Unknown]
  - Erythema [Unknown]
